FAERS Safety Report 4310272-X (Version None)
Quarter: 2004Q1

REPORT INFORMATION
  Report Type: 
  Country: None (occurrence: None)
  Receive Date: 20040301
  Receipt Date: 20040301
  Transmission Date: 20041129
  Serious: Yes (Life-Threatening)
  Sender: FDA-Public Use
  Company Number: None

PATIENT
  Sex: Female
  Weight: 68.0396 kg

DRUGS (2)
  1. CEFUROXIME AXETIL [Suspect]
     Indication: SPUTUM TEST
     Dosage: 250 MG TWICE DAIL OTHER
     Route: 050
     Dates: start: 20040111, end: 20040121
  2. DILANTIN-125 [Suspect]
     Indication: CONVULSION
     Dosage: 125MG DAILY OTHER
     Route: 050
     Dates: start: 20031125, end: 20040229

REACTIONS (4)
  - DRUG LEVEL INCREASED [None]
  - EYE ROLLING [None]
  - INFECTION [None]
  - LETHARGY [None]
